FAERS Safety Report 7645049-0 (Version None)
Quarter: 2011Q3

REPORT INFORMATION
  Report Type: 
  Country: None (occurrence: None)
  Receive Date: 20110729
  Receipt Date: 20110721
  Transmission Date: 20111222
  Serious: Yes (Other)
  Sender: FDA-Public Use
  Company Number: NL-GLAXOSMITHKLINE-B0735687A

PATIENT
  Sex: Male

DRUGS (1)
  1. FLUTICASONE NASAL SPRAY [Suspect]
     Indication: HYPERSENSITIVITY
     Dosage: 100MCG PER DAY
     Route: 045
     Dates: start: 20101123

REACTIONS (3)
  - HYPOGEUSIA [None]
  - ANOSMIA [None]
  - AGEUSIA [None]
